FAERS Safety Report 23339785 (Version 2)
Quarter: 2024Q1

REPORT INFORMATION
  Report Type: Report from Study
  Country: CA (occurrence: CA)
  Receive Date: 20231226
  Receipt Date: 20240129
  Transmission Date: 20240410
  Serious: No
  Sender: FDA-Public Use
  Company Number: CA-ABBVIE-5559120

PATIENT
  Sex: Female

DRUGS (9)
  1. BOTOX [Suspect]
     Active Substance: ONABOTULINUMTOXINA
     Indication: Migraine
     Dosage: TIME INTERVAL: AS NECESSARY
     Route: 065
  2. BOTOX [Suspect]
     Active Substance: ONABOTULINUMTOXINA
     Indication: Migraine
     Dosage: TIME INTERVAL: AS NECESSARY
     Route: 065
     Dates: start: 20231004, end: 20231004
  3. DULOXETINE [Concomitant]
     Active Substance: DULOXETINE
     Indication: Product used for unknown indication
  4. Fesoterodine eg [Concomitant]
     Indication: Product used for unknown indication
  5. MYRBETRIQ [Concomitant]
     Active Substance: MIRABEGRON
     Indication: Product used for unknown indication
  6. BACLOFEN [Concomitant]
     Active Substance: BACLOFEN
     Indication: Product used for unknown indication
  7. GABAPENTIN AL [Concomitant]
     Indication: Product used for unknown indication
     Dosage: TIME INTERVAL: 0.33333333 DAYS
  8. AFLURIA TETRA [Concomitant]
     Indication: Product used for unknown indication
  9. MODAFINIL EG [Concomitant]
     Indication: Product used for unknown indication
     Dosage: 200MG AM/ 150MG 1 PM

REACTIONS (2)
  - Insomnia [Not Recovered/Not Resolved]
  - Therapeutic product effect incomplete [Unknown]
